FAERS Safety Report 25736599 (Version 1)
Quarter: 2025Q3

REPORT INFORMATION
  Report Type: Spontaneous
  Country: JP (occurrence: JP)
  Receive Date: 20250828
  Receipt Date: 20250828
  Transmission Date: 20251021
  Serious: Yes (Death)
  Sender: DAIICHI
  Company Number: JP-DSJP-DS-2025-136866-JP

PATIENT
  Sex: Female

DRUGS (2)
  1. DATROWAY [Suspect]
     Active Substance: DATOPOTAMAB DERUXTECAN-DLNK
     Indication: Hormone receptor positive HER2 negative breast cancer
     Dosage: 6 MG/KG, ONCE EVERY 4 WK
     Route: 041
     Dates: start: 20250402, end: 20250402
  2. DATROWAY [Suspect]
     Active Substance: DATOPOTAMAB DERUXTECAN-DLNK
     Indication: Breast cancer recurrent
     Route: 041
     Dates: start: 2025, end: 2025

REACTIONS (2)
  - Disease progression [Fatal]
  - Stomatitis [Recovered/Resolved]

NARRATIVE: CASE EVENT DATE: 20250101
